FAERS Safety Report 22637462 (Version 1)
Quarter: 2023Q2

REPORT INFORMATION
  Report Type: Spontaneous
  Country: FR (occurrence: FR)
  Receive Date: 20230626
  Receipt Date: 20230626
  Transmission Date: 20230721
  Serious: Yes (Death, Life-Threatening, Other)
  Sender: FDA-Public Use
  Company Number: FR-Accord-362737

PATIENT
  Age: 38 Year
  Sex: Male

DRUGS (8)
  1. METHYLPHENIDATE HYDROCHLORIDE [Suspect]
     Active Substance: METHYLPHENIDATE HYDROCHLORIDE
  2. NORDAZEPAM [Suspect]
     Active Substance: NORDAZEPAM
  3. AMISULPRIDE [Suspect]
     Active Substance: AMISULPRIDE
  4. METHADONE [Suspect]
     Active Substance: METHADONE HYDROCHLORIDE
  5. BENZOYLECGONINE [Suspect]
     Active Substance: BENZOYLECGONINE
  6. BENZODIAZEPINE [Suspect]
     Active Substance: BENZODIAZEPINE
  7. OXAZEPAM [Suspect]
     Active Substance: OXAZEPAM
  8. PHENCYCLIDINE HYDROCHLORIDE [Suspect]
     Active Substance: PHENCYCLIDINE HYDROCHLORIDE

REACTIONS (2)
  - Drug abuse [Fatal]
  - Respiratory depression [Fatal]
